FAERS Safety Report 12833899 (Version 2)
Quarter: 2016Q4

REPORT INFORMATION
  Report Type: Spontaneous
  Country: MA (occurrence: MA)
  Receive Date: 20161010
  Receipt Date: 20161028
  Transmission Date: 20170207
  Serious: Yes (Hospitalization, Other)
  Sender: FDA-Public Use
  Company Number: MA-009507513-1610MAR003642

PATIENT
  Age: 56 Year
  Sex: Female

DRUGS (8)
  1. DEXAMETHASONE. [Suspect]
     Active Substance: DEXAMETHASONE
     Route: 048
  2. DOXORUBICIN [Suspect]
     Active Substance: DOXORUBICIN
  3. IMATINIB MESYLATE. [Concomitant]
     Active Substance: IMATINIB MESYLATE
     Dosage: 800 MG/DAY
  4. METHOTREXATE. [Suspect]
     Active Substance: METHOTREXATE
     Route: 048
  5. VINCRISTINE SULFATE. [Suspect]
     Active Substance: VINCRISTINE SULFATE
  6. CYCLOPHOSPHAMIDE. [Suspect]
     Active Substance: CYCLOPHOSPHAMIDE
  7. IMATINIB MESYLATE. [Concomitant]
     Active Substance: IMATINIB MESYLATE
     Indication: DIABETES MELLITUS
     Dosage: 400 MG/DAY,
  8. CYTARABINE. [Suspect]
     Active Substance: CYTARABINE

REACTIONS (1)
  - Septic shock [Unknown]
